FAERS Safety Report 16045981 (Version 1)
Quarter: 2019Q1

REPORT INFORMATION
  Report Type: Spontaneous
  Country: US (occurrence: US)
  Receive Date: 20190307
  Receipt Date: 20190307
  Transmission Date: 20190418
  Serious: Yes (Other)
  Sender: FDA-Public Use
  Company Number: US-NOVOPROD-649290

PATIENT
  Sex: Female

DRUGS (1)
  1. TRESIBA [Suspect]
     Active Substance: INSULIN DEGLUDEC
     Indication: PRODUCT USED FOR UNKNOWN INDICATION
     Dosage: 10 IU
     Route: 058

REACTIONS (9)
  - Musculoskeletal pain [Unknown]
  - Spondylitis [Unknown]
  - Arthritis [Unknown]
  - Hypoacusis [Unknown]
  - Memory impairment [Unknown]
  - Back pain [Unknown]
  - Loss of consciousness [Unknown]
  - Blood glucose increased [Unknown]
  - Neck pain [Unknown]

NARRATIVE: CASE EVENT DATE: 2018
